FAERS Safety Report 15856790 (Version 2)
Quarter: 2019Q2

REPORT INFORMATION
  Report Type: Spontaneous
  Country: DE (occurrence: DE)
  Receive Date: 20190123
  Receipt Date: 20190405
  Transmission Date: 20190711
  Serious: Yes (Death, Hospitalization, Other)
  Sender: FDA-Public Use
  Company Number: DE-BRISTOL-MYERS SQUIBB COMPANY-BMS-2019-004604

PATIENT
  Age: 86 Year
  Sex: Female

DRUGS (5)
  1. ELIQUIS [Suspect]
     Active Substance: APIXABAN
     Indication: CEREBROVASCULAR ACCIDENT PROPHYLAXIS
     Dosage: 2.5 MILLIGRAM, BID
     Route: 065
  2. NOVALGIN (METAMIZOLE SODIUM) [Concomitant]
     Active Substance: METAMIZOLE SODIUM
     Indication: PAIN
     Dosage: 500 MILLIGRAM, QID
     Route: 065
  3. TORASEMID [Concomitant]
     Active Substance: TORSEMIDE
     Indication: CARDIAC FAILURE
     Dosage: 10 MILLIGRAM, BID
     Route: 065
  4. METOHEXAL                          /00376902/ [Concomitant]
     Active Substance: METOPROLOL SUCCINATE
     Indication: ATRIAL FIBRILLATION
     Dosage: 95 MILLIGRAM, QD
     Route: 065
  5. TILIDINE [Concomitant]
     Active Substance: TILIDINE
     Indication: PAIN
     Route: 065

REACTIONS (5)
  - Cerebellar haemorrhage [Fatal]
  - Cerebrospinal fluid retention [Fatal]
  - Depressed level of consciousness [Fatal]
  - Intraventricular haemorrhage [Fatal]
  - Facial paresis [Fatal]

NARRATIVE: CASE EVENT DATE: 20181221
